FAERS Safety Report 14336523 (Version 2)
Quarter: 2018Q3

REPORT INFORMATION
  Report Type: Spontaneous
  Country: IT (occurrence: IT)
  Receive Date: 20171229
  Receipt Date: 20180921
  Transmission Date: 20181010
  Serious: Yes (Hospitalization, Other)
  Sender: FDA-Public Use
  Company Number: IT-AUROBINDO-AUR-APL-2017-48074

PATIENT
  Age: 50 Year
  Sex: Male

DRUGS (22)
  1. SOVALDI [Suspect]
     Active Substance: SOFOSBUVIR
     Indication: HEPATITIS C
     Dosage: 60 MILLIGRAM
     Route: 065
  2. NEORECORMON [Concomitant]
     Active Substance: ERYTHROPOIETIN
     Indication: ANAEMIA
     Dosage: ()
     Route: 065
     Dates: start: 20150708, end: 20151110
  3. GAVISCON ADVANCE                   /01340901/ [Concomitant]
     Indication: DYSPEPSIA
     Dosage: ()
     Route: 048
     Dates: start: 20120221, end: 20150408
  4. SOVALDI [Suspect]
     Active Substance: SOFOSBUVIR
     Dosage: 60 MG, UNK
     Route: 065
  5. METHADONE [Concomitant]
     Active Substance: METHADONE HYDROCHLORIDE
     Indication: DRUG DEPENDENCE
     Dosage: ()
     Route: 048
     Dates: start: 20090803
  6. DAKLINZA [Suspect]
     Active Substance: DACLATASVIR
     Indication: HEPATITIS C
     Dosage: 30 MG BLISTER PACK (PVC/PCTFE/AL)?28 TABLETS
     Route: 048
     Dates: start: 20150603, end: 20150722
  7. NORVIR [Suspect]
     Active Substance: RITONAVIR
     Indication: HIV INFECTION
     Dosage: 100 MG BOTTLE (HDPE)?30 TABLETS
     Route: 048
     Dates: start: 20091007, end: 20150722
  8. REYATAZ [Suspect]
     Active Substance: ATAZANAVIR SULFATE
     Indication: ACQUIRED IMMUNODEFICIENCY SYNDROME
     Dosage: 300 MG BOTTLE (HIGH DENSITY POLYETHYLENE) 30 CAPSULES
     Route: 048
     Dates: start: 20091007, end: 20150722
  9. PERIDON                            /00498201/ [Concomitant]
     Active Substance: DOMPERIDONE
     Indication: NAUSEA
     Dosage: ()
     Route: 048
     Dates: start: 20110706, end: 20150408
  10. DIBASE [Concomitant]
     Active Substance: CHOLECALCIFEROL
     Indication: PRODUCT USED FOR UNKNOWN INDICATION
     Dosage: 20 GTT
     Route: 048
     Dates: start: 20120522
  11. TALOFEN [Concomitant]
     Active Substance: PROMAZINE HYDROCHLORIDE
     Indication: PRODUCT USED FOR UNKNOWN INDICATION
     Dosage: 4 GM/100 MLM ?30ML BOTTLE SOLUTIONS
     Route: 048
     Dates: start: 20130513
  12. PERIDON                            /00498201/ [Concomitant]
     Active Substance: DOMPERIDONE
     Indication: NAUSEA
     Dosage: ()
     Route: 048
     Dates: start: 20110706, end: 20150408
  13. DAKLINZA [Suspect]
     Active Substance: DACLATASVIR
     Dosage: 60 MG, UNK
     Route: 065
     Dates: start: 20150722
  14. REYATAZ [Suspect]
     Active Substance: ATAZANAVIR SULFATE
     Indication: HIV INFECTION
  15. SOVALDI [Suspect]
     Active Substance: SOFOSBUVIR
     Dosage: 400 MG BOTTLE (HDPE)? 28 TABLETS
     Route: 048
     Dates: start: 20150603, end: 20151111
  16. LAEVOLAC EPS [Concomitant]
     Indication: PRODUCT USED FOR UNKNOWN INDICATION
     Dosage: ()
     Route: 051
  17. KIVEXA [Suspect]
     Active Substance: ABACAVIR SULFATE\LAMIVUDINE
     Indication: HIV INFECTION
     Dosage: 30X300+600 MG TABLETS IN PVC/PVDC/AL BLISTER PACK ()
     Route: 048
     Dates: start: 20120621
  18. SOVALDI [Suspect]
     Active Substance: SOFOSBUVIR
     Route: 065
  19. LAMIVUDINE. [Suspect]
     Active Substance: LAMIVUDINE
     Indication: HIV INFECTION
     Dosage: ()
     Route: 065
  20. PERIDON                            /00498201/ [Concomitant]
     Active Substance: DOMPERIDONE
     Dosage: ()
     Route: 048
  21. COPEGUS [Suspect]
     Active Substance: RIBAVIRIN
     Indication: HEPATITIS C
     Dosage: 200 MG ?42 TABLETS IN A BOTTLE
     Route: 048
     Dates: start: 20150603, end: 20151111
  22. TRUVADA [Concomitant]
     Active Substance: EMTRICITABINE\TENOFOVIR DISOPROXIL FUMARATE
     Indication: HIV INFECTION
     Dosage: ()
     Route: 048
     Dates: start: 20091007, end: 20120621

REACTIONS (6)
  - Cholelithiasis [Recovered/Resolved]
  - Biliary colic [Unknown]
  - Drug interaction [Unknown]
  - Nephrolithiasis [Recovered/Resolved]
  - Haemoglobin decreased [Not Recovered/Not Resolved]
  - Hyperbilirubinaemia [Recovering/Resolving]

NARRATIVE: CASE EVENT DATE: 20150722
